FAERS Safety Report 10022160 (Version 1)
Quarter: 2014Q1

REPORT INFORMATION
  Report Type: Spontaneous
  Country: IR (occurrence: IR)
  Receive Date: 20140319
  Receipt Date: 20140319
  Transmission Date: 20141002
  Serious: Yes (Hospitalization)
  Sender: FDA-Public Use
  Company Number: PHHY2014IR031400

PATIENT
  Age: 41 Year
  Sex: Male

DRUGS (3)
  1. NALTREXONE [Suspect]
  2. TRAMADOL [Concomitant]
  3. BENZODIAZEPINES [Concomitant]
     Route: 048

REACTIONS (14)
  - Serotonin syndrome [Recovered/Resolved]
  - Agitation [Recovered/Resolved]
  - Loss of consciousness [Recovered/Resolved]
  - Convulsion [Recovered/Resolved]
  - Mydriasis [Recovered/Resolved]
  - Hyperhidrosis [Recovered/Resolved]
  - Tachycardia [Recovered/Resolved]
  - Ecchymosis [Recovered/Resolved]
  - Pupillary reflex impaired [Recovered/Resolved]
  - Sinus tachycardia [Recovered/Resolved]
  - Pyrexia [Recovered/Resolved]
  - Restlessness [Recovered/Resolved]
  - Insomnia [Recovered/Resolved]
  - Rhabdomyolysis [Recovered/Resolved]
